FAERS Safety Report 5088042-7 (Version None)
Quarter: 2006Q3

REPORT INFORMATION
  Report Type: 
  Country: None (occurrence: None)
  Receive Date: 20060727
  Receipt Date: 20060516
  Transmission Date: 20061208
  Serious: Yes (Other)
  Sender: FDA-Public Use
  Company Number: 2006032194

PATIENT
  Age: 85 Year
  Sex: Female
  Weight: 72.5755 kg

DRUGS (11)
  1. LYRICA [Suspect]
     Indication: PAIN
     Dosage: 50 MG (50 MG, 1 IN 1 D)
     Dates: start: 20060225
  2. SINEMET [Concomitant]
  3. ZOLOFT [Concomitant]
  4. TOPROL-XL [Concomitant]
  5. ALL OTHER THERAPEUTIC PRODUCTS (ALL OTHER THERAPEUTIC PRODUCTS) [Concomitant]
  6. NAMENDA [Concomitant]
  7. FISH OIL (FISH OIL) [Concomitant]
  8. VITAMIN C (VITAMIN C) [Concomitant]
  9. ASPIRIN [Concomitant]
  10. MULTIVITAMIN [Concomitant]
  11. GABAPENTIN [Concomitant]

REACTIONS (2)
  - LOSS OF CONTROL OF LEGS [None]
  - SENSORY LOSS [None]
